FAERS Safety Report 5628604-9 (Version None)
Quarter: 2008Q1

REPORT INFORMATION
  Report Type: 
  Country: None (occurrence: None)
  Receive Date: 20080214
  Receipt Date: 20080214
  Transmission Date: 20080703
  Serious: Yes (Life-Threatening, Hospitalization)
  Sender: FDA-Public Use
  Company Number: None

PATIENT
  Age: 74 Year
  Sex: Male
  Weight: 55.1 kg

DRUGS (2)
  1. SULFAMETHOXAZOLE AND TRIMETHOPRIM [Suspect]
     Indication: RASH
     Dosage: SMX 800/TMP 160MG BID PO
     Route: 048
     Dates: start: 20071210, end: 20071214
  2. SULFAMETHOXAZOLE AND TRIMETHOPRIM [Suspect]
     Indication: URINARY TRACT INFECTION
     Dosage: SMX 800/TMP 160MG BID PO
     Route: 048
     Dates: start: 20071210, end: 20071214

REACTIONS (11)
  - ATRIOVENTRICULAR BLOCK [None]
  - BRADYCARDIA [None]
  - CHEST PAIN [None]
  - COUGH [None]
  - DYSPNOEA [None]
  - HAEMODIALYSIS [None]
  - HYPERKALAEMIA [None]
  - HYPOTENSION [None]
  - NO THERAPEUTIC RESPONSE [None]
  - PALPITATIONS [None]
  - RENAL TUBULAR NECROSIS [None]
